FAERS Safety Report 11951301 (Version 1)
Quarter: 2016Q1

REPORT INFORMATION
  Report Type: Spontaneous
  Country: US (occurrence: None)
  Receive Date: 20160122
  Receipt Date: 20160122
  Transmission Date: 20160526
  Serious: Yes (Hospitalization)
  Sender: FDA-Public Use
  Company Number: None

PATIENT
  Age: 47 Year
  Sex: Male
  Weight: 100 kg

DRUGS (37)
  1. ATOVAQUONE. [Concomitant]
     Active Substance: ATOVAQUONE
  2. ACETAMINOPHEN. [Concomitant]
     Active Substance: ACETAMINOPHEN
  3. FOLIC ACID. [Concomitant]
     Active Substance: FOLIC ACID
  4. SEVELAMER CARBONATE. [Concomitant]
     Active Substance: SEVELAMER CARBONATE
  5. POLYETHYLENE GLYCOL [Concomitant]
     Active Substance: POLYETHYLENE GLYCOLS
  6. OMEPRAZOLE. [Concomitant]
     Active Substance: OMEPRAZOLE
  7. OXYCODONE HYDROCHLORIDE. [Concomitant]
     Active Substance: OXYCODONE HYDROCHLORIDE
  8. ACETAMINOPHEN/BUTALBITAL/CAFFEINE [Concomitant]
     Active Substance: ACETAMINOPHEN\BUTALBITAL\CAFFEINE
  9. HEPARIN SODIUM/DEXTROSE [Concomitant]
  10. PREDNISONE. [Concomitant]
     Active Substance: PREDNISONE
  11. SODIUM BICARBONATE. [Concomitant]
     Active Substance: SODIUM BICARBONATE
  12. HYDROMORPHONE HCL [Concomitant]
     Active Substance: HYDROMORPHONE HYDROCHLORIDE
  13. FUROSEMIDE. [Concomitant]
     Active Substance: FUROSEMIDE
  14. DAPSONE. [Concomitant]
     Active Substance: DAPSONE
  15. ASDIR [Concomitant]
  16. DAPSONE 25MG [Suspect]
     Active Substance: DAPSONE
     Indication: IGA NEPHROPATHY
     Route: 048
  17. LIDOCAINE HCL [Concomitant]
     Active Substance: LIDOCAINE HYDROCHLORIDE
  18. ALBUTEROL. [Concomitant]
     Active Substance: ALBUTEROL
  19. HEPARIN SODIUM (PORCINE) [Concomitant]
  20. DOCUSATE SODIUM. [Concomitant]
     Active Substance: DOCUSATE SODIUM
  21. PREDNISONE. [Concomitant]
     Active Substance: PREDNISONE
  22. LORAZEPAM. [Concomitant]
     Active Substance: LORAZEPAM
  23. HYDRALAZINE HCL [Concomitant]
     Active Substance: HYDRALAZINE HYDROCHLORIDE
  24. LORATADINE. [Concomitant]
     Active Substance: LORATADINE
  25. WARFARIN SODIUM. [Concomitant]
     Active Substance: WARFARIN SODIUM
  26. PIPERACILLIN SOD/TAZOBACTAM SOD [Concomitant]
  27. ACETAMINOPHEN. [Concomitant]
     Active Substance: ACETAMINOPHEN
  28. QUETIAPINE FUMARATE. [Concomitant]
     Active Substance: QUETIAPINE FUMARATE
  29. METOPROLOL TARTRATE. [Concomitant]
     Active Substance: METOPROLOL TARTRATE
  30. BISACODYL. [Concomitant]
     Active Substance: BISACODYL
  31. ONDANSETRON HCL [Concomitant]
     Active Substance: ONDANSETRON HYDROCHLORIDE
  32. DEXTROSE/WATER [Concomitant]
  33. SODIUM CHLORIDE. [Concomitant]
     Active Substance: SODIUM CHLORIDE
  34. MELATONIN [Concomitant]
     Active Substance: MELATONIN
  35. LABETALOL HCL [Concomitant]
     Active Substance: LABETALOL HYDROCHLORIDE
  36. LACTULOSE. [Concomitant]
     Active Substance: LACTULOSE
  37. SIMVASTATIN. [Concomitant]
     Active Substance: SIMVASTATIN

REACTIONS (1)
  - Haemolytic anaemia [None]

NARRATIVE: CASE EVENT DATE: 20160119
